FAERS Safety Report 21105744 (Version 1)
Quarter: 2022Q3

REPORT INFORMATION
  Report Type: Spontaneous
  Country: US (occurrence: None)
  Receive Date: 20220720
  Receipt Date: 20220720
  Transmission Date: 20221027
  Serious: No
  Sender: FDA-Public Use
  Company Number: None

PATIENT

DRUGS (2)
  1. METFORMIN HYDROCHLORIDE [Suspect]
     Active Substance: METFORMIN HYDROCHLORIDE
  2. LOVASTATIN [Suspect]
     Active Substance: LOVASTATIN

REACTIONS (3)
  - Product dispensing error [None]
  - Incorrect dose administered [None]
  - Product dispensing error [None]
